FAERS Safety Report 7725221-1 (Version None)
Quarter: 2011Q3

REPORT INFORMATION
  Report Type: 
  Country: None (occurrence: None)
  Receive Date: 20110901
  Receipt Date: 20110819
  Transmission Date: 20111222
  Serious: Yes (Life-Threatening, Hospitalization)
  Sender: FDA-Public Use
  Company Number: US-BAUSCH-2011BL005624

PATIENT
  Age: 71 Year
  Sex: Male

DRUGS (2)
  1. GANCICLOVIR [Suspect]
     Indication: CYTOMEGALOVIRUS INFECTION
     Route: 042
     Dates: start: 20100101, end: 20100101
  2. PROGRAF [Concomitant]
     Indication: LIVER TRANSPLANT REJECTION

REACTIONS (6)
  - ENCEPHALITIS HERPES [None]
  - GRAND MAL CONVULSION [None]
  - NEUTROPENIA [None]
  - PLEURAL EFFUSION [None]
  - DRUG INEFFECTIVE [None]
  - PNEUMONIA [None]
